FAERS Safety Report 9394822 (Version 2)
Quarter: 2013Q3

REPORT INFORMATION
  Report Type: Spontaneous
  Country: US (occurrence: US)
  Receive Date: 20130711
  Receipt Date: 20130926
  Transmission Date: 20140515
  Serious: Yes (Hospitalization)
  Sender: FDA-Public Use
  Company Number: US-BAYER-2013-084131

PATIENT
  Age: 17 Year
  Sex: Female
  Weight: 72.56 kg

DRUGS (15)
  1. YAZ [Suspect]
     Indication: ACNE
     Dosage: UNK
     Route: 048
     Dates: start: 200710, end: 20080115
  2. YASMIN [Suspect]
     Indication: ACNE
  3. TORADOL [Concomitant]
  4. COMPAZINE [Concomitant]
  5. BENADRYL [Concomitant]
  6. ZOFRAN [Concomitant]
  7. DILAUDID [Concomitant]
  8. TYLENOL #3 [Concomitant]
  9. MOTRIN [Concomitant]
  10. VICODIN [Concomitant]
  11. CLINDAMYCIN [Concomitant]
  12. FLUCONAZOLE [Concomitant]
  13. ZAZOLE [Concomitant]
     Dosage: 0.8%
  14. IMITREX [Concomitant]
  15. PHENERGAN [PROMETHAZINE] [Concomitant]

REACTIONS (9)
  - Superior sagittal sinus thrombosis [None]
  - Convulsion [None]
  - Headache [None]
  - Dizziness [None]
  - Nausea [None]
  - Vomiting [None]
  - Hypoaesthesia [None]
  - Asthenia [None]
  - Vision blurred [None]
